FAERS Safety Report 16688813 (Version 1)
Quarter: 2019Q4

REPORT INFORMATION
  Report Type: Spontaneous
  Country: US (occurrence: US)
  Receive Date: 20190809
  Receipt Date: 20190809
  Transmission Date: 20200122
  Serious: Yes (Hospitalization)
  Sender: FDA-Public Use
  Company Number: None

PATIENT
  Age: 56 Year
  Sex: Female

DRUGS (14)
  1. DULOXETINE. [Concomitant]
     Active Substance: DULOXETINE
     Dates: start: 20161206
  2. MELOXICAM. [Concomitant]
     Active Substance: MELOXICAM
     Dates: start: 20161205
  3. OXYCODONE [Concomitant]
     Active Substance: OXYCODONE
     Dates: start: 20190715
  4. PANTOPRAZOLE [Concomitant]
     Active Substance: PANTOPRAZOLE
     Dates: start: 20170124
  5. XTAMPZA [Concomitant]
     Active Substance: OXYCODONE
     Dates: start: 20190715
  6. METOPROLOL TART [Concomitant]
     Active Substance: METOPROLOL TARTRATE
     Dates: start: 20190701
  7. TRAZODONE [Concomitant]
     Active Substance: TRAZODONE HYDROCHLORIDE
     Dates: start: 20190503
  8. SYNTHROID [Concomitant]
     Active Substance: LEVOTHYROXINE SODIUM
     Dates: start: 20190205
  9. SIMVASTATIN. [Concomitant]
     Active Substance: SIMVASTATIN
     Dates: start: 20181123
  10. ORENCIA [Suspect]
     Active Substance: ABATACEPT
     Indication: RHEUMATOID ARTHRITIS
     Dosage: ?          OTHER FREQUENCY:ONCE A WEEK;?
     Route: 058
     Dates: start: 20180707
  11. LEFLUNOMIDE. [Concomitant]
     Active Substance: LEFLUNOMIDE
     Dates: start: 20161205
  12. HYDROCHLOROTHIAZIDE. [Concomitant]
     Active Substance: HYDROCHLOROTHIAZIDE
     Dates: start: 20161205
  13. BIOTIN [Concomitant]
     Active Substance: BIOTIN
     Dates: start: 20161205
  14. VITAMIN D3 [Concomitant]
     Active Substance: CHOLECALCIFEROL
     Dates: start: 20161205

REACTIONS (1)
  - Pain [None]

NARRATIVE: CASE EVENT DATE: 20190801
